FAERS Safety Report 4549136-5 (Version None)
Quarter: 2004Q4

REPORT INFORMATION
  Report Type: 
  Country: None (occurrence: None)
  Receive Date: 20041227
  Receipt Date: 20041101
  Transmission Date: 20050328
  Serious: No
  Sender: FDA-Public Use
  Company Number: 04P-163-0271982-00

PATIENT
  Age: 77 Year
  Sex: Female
  Weight: 68.9467 kg

DRUGS (6)
  1. HUMIRA [Suspect]
     Indication: RHEUMATOID ARTHRITIS
     Dosage: 40 MG, 1 IN 2 WK, SUBCUTANEOUS
     Route: 058
     Dates: start: 20040608, end: 20040830
  2. HUMIRA [Suspect]
     Indication: RHEUMATOID ARTHRITIS
     Dosage: 40 MG, 1 IN 2 WK, SUBCUTANEOUS
     Route: 058
     Dates: start: 20041001
  3. HYDROXYCHLOROQUINE PHOSPHATE [Concomitant]
  4. VERAPAMIL [Concomitant]
  5. SULINDAC [Concomitant]
  6. OLOPATADINE HYDROCHLORIDE [Concomitant]

REACTIONS (7)
  - ANAEMIA [None]
  - CONSTIPATION [None]
  - COUGH [None]
  - INJECTION SITE HAEMORRHAGE [None]
  - NASOPHARYNGITIS [None]
  - RASH [None]
  - URTICARIA [None]
